FAERS Safety Report 7018881-4 (Version None)
Quarter: 2010Q3

REPORT INFORMATION
  Report Type: 
  Country: None (occurrence: None)
  Receive Date: 20100928
  Receipt Date: 20100917
  Transmission Date: 20110219
  Serious: Yes (Death, Life-Threatening, Hospitalization)
  Sender: FDA-Public Use
  Company Number: US-PFIZER INC-2010088914

PATIENT
  Sex: Female
  Weight: 73.469 kg

DRUGS (6)
  1. SUTENT [Suspect]
     Indication: RENAL CELL CARCINOMA
     Dosage: 25 MG, 1X/DAY
     Route: 048
     Dates: start: 20091113, end: 20100701
  2. POTASSIUM [Concomitant]
  3. MAGNESIUM OXIDE [Concomitant]
  4. VERAPAMIL [Concomitant]
  5. ASPIRINE [Concomitant]
  6. HYDROCODONE [Concomitant]

REACTIONS (16)
  - CONSTIPATION [None]
  - DECREASED APPETITE [None]
  - DIARRHOEA [None]
  - DISSEMINATED INTRAVASCULAR COAGULATION [None]
  - ENCEPHALOPATHY [None]
  - FAILURE TO THRIVE [None]
  - GASTROINTESTINAL PERFORATION [None]
  - MEGACOLON [None]
  - MENTAL STATUS CHANGES [None]
  - METABOLIC ACIDOSIS [None]
  - NAUSEA [None]
  - NEUTROPENIA [None]
  - PERITONITIS [None]
  - RENAL FAILURE ACUTE [None]
  - SEPSIS [None]
  - WEIGHT DECREASED [None]
